FAERS Safety Report 5685246-7 (Version None)
Quarter: 2008Q1

REPORT INFORMATION
  Report Type: 
  Country: None (occurrence: None)
  Receive Date: 20080328
  Receipt Date: 20080318
  Transmission Date: 20080703
  Serious: Yes (Life-Threatening, Other)
  Sender: FDA-Public Use
  Company Number: FR-PFIZER INC-2008004060

PATIENT
  Sex: Male
  Weight: 88 kg

DRUGS (6)
  1. LYRICA [Suspect]
     Indication: BACK PAIN
     Route: 048
     Dates: start: 20070323, end: 20070611
  2. LYRICA [Suspect]
     Indication: PAIN IN EXTREMITY
  3. LYRICA [Suspect]
     Indication: NEURALGIA
  4. TRAMADOL HCL [Concomitant]
     Route: 048
     Dates: start: 20070201, end: 20070730
  5. ALL OTHER THERAPEUTIC PRODUCTS [Concomitant]
  6. THIOCOLCHICOSIDE [Concomitant]
     Route: 048
     Dates: start: 20070323, end: 20070611

REACTIONS (3)
  - GAMMA-GLUTAMYLTRANSFERASE INCREASED [None]
  - HEPATITIS [None]
  - TRANSAMINASES INCREASED [None]
